FAERS Safety Report 17262496 (Version 4)
Quarter: 2020Q2

REPORT INFORMATION
  Report Type: Spontaneous
  Country: DE (occurrence: DE)
  Receive Date: 20200113
  Receipt Date: 20200610
  Transmission Date: 20200713
  Serious: Yes (Hospitalization, Other)
  Sender: FDA-Public Use
  Company Number: NVSC2020DE005207

PATIENT
  Sex: Female
  Weight: 70 kg

DRUGS (6)
  1. RAMIPRIL. [Concomitant]
     Active Substance: RAMIPRIL
     Indication: PRODUCT USED FOR UNKNOWN INDICATION
     Dosage: 5 MG, QD
     Route: 065
  2. LEVOFLOXACIN - 1 A PHARMA 500 MG FILMTABLETTEN [Suspect]
     Active Substance: LEVOFLOXACIN
     Dosage: 1 DF, QD (TABLET)
     Route: 065
     Dates: start: 2016
  3. LEVOFLOXACIN - 1 A PHARMA 500 MG FILMTABLETTEN [Suspect]
     Active Substance: LEVOFLOXACIN
     Dosage: 500 MG
     Route: 065
     Dates: start: 20170417
  4. TRIMIPRAMIN [Concomitant]
     Active Substance: TRIMIPRAMINE
     Indication: PRODUCT USED FOR UNKNOWN INDICATION
     Dosage: 50 MG, QD
     Route: 065
  5. LEVOFLOXACIN - 1 A PHARMA 500 MG FILMTABLETTEN [Suspect]
     Active Substance: LEVOFLOXACIN
     Indication: PNEUMONIA
     Dosage: 2 DF, QD (TABLET)
     Route: 065
     Dates: start: 20160414, end: 20160421
  6. L-THYROXIN [Concomitant]
     Active Substance: LEVOTHYROXINE SODIUM
     Indication: PRODUCT USED FOR UNKNOWN INDICATION
     Dosage: 75 OT, QD
     Route: 065

REACTIONS (10)
  - Tendon discomfort [Not Recovered/Not Resolved]
  - Limb discomfort [Not Recovered/Not Resolved]
  - Pain in extremity [Not Recovered/Not Resolved]
  - Joint swelling [Not Recovered/Not Resolved]
  - Tendon disorder [Not Recovered/Not Resolved]
  - Aortic valve incompetence [Unknown]
  - Cough [Unknown]
  - Hypersensitivity [Not Recovered/Not Resolved]
  - Oedema peripheral [Not Recovered/Not Resolved]
  - Hypertension [Unknown]

NARRATIVE: CASE EVENT DATE: 2016
